FAERS Safety Report 18250438 (Version 7)
Quarter: 2021Q2

REPORT INFORMATION
  Report Type: Report from Study
  Country: JP (occurrence: JP)
  Receive Date: 20200909
  Receipt Date: 20210415
  Transmission Date: 20210717
  Serious: Yes (Death, Life-Threatening, Hospitalization, Other)
  Sender: FDA-Public Use
  Company Number: JP-JNJFOC-A-CH2019-190965

PATIENT
  Age: 64 Year
  Sex: Male
  Weight: 60 kg

DRUGS (26)
  1. OPSUMIT [Suspect]
     Active Substance: MACITENTAN
     Indication: PULMONARY ARTERIAL HYPERTENSION
     Dosage: 10 MG, QD
     Route: 048
     Dates: start: 20181009, end: 202010
  2. VOGLIBOSE [Concomitant]
     Active Substance: VOGLIBOSE
     Indication: TYPE 2 DIABETES MELLITUS
     Dosage: 0.9 MG, QD
     Route: 048
  3. GLUFAST [Concomitant]
     Active Substance: MITIGLINIDE
     Indication: TYPE 2 DIABETES MELLITUS
     Dosage: 30 MG, QD
  4. UPTRAVI [Suspect]
     Active Substance: SELEXIPAG
     Indication: PULMONARY ARTERIAL HYPERTENSION
     Dosage: 0.8 MG, BID
     Route: 048
     Dates: start: 20181204, end: 20190424
  5. UPTRAVI [Suspect]
     Active Substance: SELEXIPAG
     Indication: PULMONARY HYPERTENSION
     Dosage: 0.8 MG, BID
     Route: 048
     Dates: start: 20181022, end: 20181028
  6. UPTRAVI [Suspect]
     Active Substance: SELEXIPAG
     Dosage: 0.6 MG, BID
     Route: 048
     Dates: start: 20181120, end: 20181203
  7. UPTRAVI [Suspect]
     Active Substance: SELEXIPAG
     Dosage: 1.6 MG, BID
     Route: 048
     Dates: start: 20191119, end: 202010
  8. FEBURIC [Concomitant]
     Active Substance: FEBUXOSTAT
     Indication: PULMONARY ARTERIAL HYPERTENSION
  9. VOGLIBOSE [Concomitant]
     Active Substance: VOGLIBOSE
     Dosage: 0.3 MG, QD
     Route: 048
  10. UPTRAVI [Suspect]
     Active Substance: SELEXIPAG
     Dosage: 0.4 MG, BID
     Route: 048
     Dates: start: 20181029, end: 20181119
  11. UPTRAVI [Suspect]
     Active Substance: SELEXIPAG
     Dosage: 1 MG, BID
     Route: 048
     Dates: start: 20190425, end: 20190429
  12. UPTRAVI [Suspect]
     Active Substance: SELEXIPAG
     Dosage: 1.2 MG, BID
     Route: 048
     Dates: start: 20190430, end: 20190504
  13. UPTRAVI [Suspect]
     Active Substance: SELEXIPAG
     Dosage: 1.4 MG, BID
     Route: 048
     Dates: start: 20190505, end: 20191118
  14. ADCIRCA [Concomitant]
     Active Substance: TADALAFIL
     Indication: PULMONARY ARTERIAL HYPERTENSION
     Dosage: 20 MG, QD
     Route: 048
     Dates: start: 20181002
  15. ADCIRCA [Concomitant]
     Active Substance: TADALAFIL
     Indication: PULMONARY HYPERTENSION
     Dates: end: 202010
  16. DIART [Concomitant]
     Active Substance: AZOSEMIDE
     Indication: PULMONARY HYPERTENSION
     Dosage: 30 MG, QD
     Route: 048
  17. SELARA [Concomitant]
     Active Substance: EPLERENONE
     Indication: PULMONARY HYPERTENSION
     Dosage: 25 MG, QD
     Route: 048
     Dates: start: 20180802
  18. XARELTO [Suspect]
     Active Substance: RIVAROXABAN
     Indication: PULMONARY HYPERTENSION
     Dosage: 15 MG, QD
     Route: 048
     Dates: start: 20190619, end: 20190620
  19. OPSUMIT [Suspect]
     Active Substance: MACITENTAN
     Indication: PULMONARY HYPERTENSION
  20. PREDONINE [Suspect]
     Active Substance: PREDNISOLONE
     Indication: PRODUCT USED FOR UNKNOWN INDICATION
     Route: 048
  21. LANSOPRAZOLE. [Concomitant]
     Active Substance: LANSOPRAZOLE
     Indication: GASTRIC ULCER
     Dosage: 15 MG, QD
     Route: 048
  22. FEBURIC [Concomitant]
     Active Substance: FEBUXOSTAT
     Indication: HYPERURICAEMIA
     Dosage: 20 MG, QD
     Route: 048
  23. GLUFAST [Concomitant]
     Active Substance: MITIGLINIDE
     Dosage: 30 MG, QD
     Route: 048
  24. CORTRIL [Suspect]
     Active Substance: HYDROCORTISONE
     Indication: LANGERHANS^ CELL HISTIOCYTOSIS
     Dosage: 15 MG, QD
     Route: 048
     Dates: start: 20180803, end: 20190228
  25. ZOLPIDEM TARTRATE. [Concomitant]
     Active Substance: ZOLPIDEM TARTRATE
     Indication: INSOMNIA
     Dosage: 5 MG, QD
     Route: 048
  26. OXYGEN. [Concomitant]
     Active Substance: OXYGEN
     Route: 055

REACTIONS (9)
  - Lymphadenopathy [Not Recovered/Not Resolved]
  - Transfusion [Recovered/Resolved]
  - Off label use [Unknown]
  - Pulmonary hypertension [Fatal]
  - Right ventricular failure [Unknown]
  - Iron deficiency anaemia [Recovered/Resolved]
  - Pneumothorax [Recovered/Resolved]
  - Chest pain [Recovered/Resolved]
  - Thoracic cavity drainage [Recovered/Resolved]

NARRATIVE: CASE EVENT DATE: 20181210
